FAERS Safety Report 15175739 (Version 7)
Quarter: 2019Q1

REPORT INFORMATION
  Report Type: Spontaneous
  Country: US (occurrence: US)
  Receive Date: 20180720
  Receipt Date: 20190103
  Transmission Date: 20190417
  Serious: No
  Sender: FDA-Public Use
  Company Number: US-ACTELION-A-NJ2018-175730

PATIENT
  Age: 22 Year
  Sex: Female
  Weight: 49.89 kg

DRUGS (7)
  1. UPTRAVI [Suspect]
     Active Substance: SELEXIPAG
     Indication: PULMONARY ARTERIAL HYPERTENSION
     Dosage: 1200 MCG, BID
     Route: 048
     Dates: start: 20180710
  2. TYVASO [Concomitant]
     Active Substance: TREPROSTINIL
     Dosage: 36 MCG, QID
  3. UPTRAVI [Suspect]
     Active Substance: SELEXIPAG
     Dosage: 200 MCG, BID
     Route: 048
     Dates: start: 20180710
  4. TRACLEER [Suspect]
     Active Substance: BOSENTAN
     Indication: PULMONARY ARTERIAL HYPERTENSION
     Dosage: 125 MG, BID
     Route: 048
  5. REVATIO [Concomitant]
     Active Substance: SILDENAFIL CITRATE
  6. COUMADIN [Concomitant]
     Active Substance: WARFARIN SODIUM
  7. UPTRAVI [Suspect]
     Active Substance: SELEXIPAG
     Dosage: 1000 MCG, BID
     Route: 048
     Dates: start: 20180710

REACTIONS (12)
  - Nausea [Unknown]
  - Abdominal discomfort [Unknown]
  - Rash pruritic [Unknown]
  - Adverse event [Unknown]
  - Hypotension [Unknown]
  - Thirst [Unknown]
  - Feeling hot [Unknown]
  - Pain in jaw [Unknown]
  - Rash papular [Unknown]
  - Memory impairment [Unknown]
  - Dyspnoea [Unknown]
  - Product dose omission [Unknown]

NARRATIVE: CASE EVENT DATE: 201807
